FAERS Safety Report 20327464 (Version 1)
Quarter: 2022Q1

REPORT INFORMATION
  Report Type: Spontaneous
  Country: US (occurrence: US)
  Receive Date: 20220112
  Receipt Date: 20220112
  Transmission Date: 20220423
  Serious: Yes (Other)
  Sender: FDA-Public Use
  Company Number: US-CELGENE-USA-20220102629

PATIENT

DRUGS (2)
  1. AZACITIDINE [Suspect]
     Active Substance: AZACITIDINE
     Indication: Myelodysplastic syndrome
     Dosage: 75 MILLIGRAM/SQ. METER
     Route: 041
  2. OMACETAXINE [Suspect]
     Active Substance: OMACETAXINE
     Indication: Myelodysplastic syndrome
     Dosage: WITH 4 DOSE COHORTS (0.75, 1.0 AND 1.25 MG/M 2, AND A DE-ESCALATION COHORT OF 0.5 MG/M 2)
     Route: 058

REACTIONS (1)
  - Gastrointestinal haemorrhage [Unknown]
